FAERS Safety Report 16034801 (Version 2)
Quarter: 2019Q2

REPORT INFORMATION
  Report Type: Spontaneous
  Country: US (occurrence: US)
  Receive Date: 20190305
  Receipt Date: 20190418
  Transmission Date: 20190711
  Serious: Yes (Other)
  Sender: FDA-Public Use
  Company Number: US-BAYER-2019-041678

PATIENT
  Sex: Male

DRUGS (5)
  1. BAYER ASPIRIN [Suspect]
     Active Substance: ASPIRIN
     Indication: ARTERIAL THERAPEUTIC PROCEDURE
     Dosage: SPLITTED PILL (1/4)
     Dates: start: 201809
  2. ZETIA [Concomitant]
     Active Substance: EZETIMIBE
     Dosage: 10 MG, QD
  3. CRESTOR [Concomitant]
     Active Substance: ROSUVASTATIN CALCIUM
  4. BAYER ASPIRIN [Suspect]
     Active Substance: ASPIRIN
     Indication: ARTERIAL THERAPEUTIC PROCEDURE
     Dosage: 325 MG, QD
     Dates: start: 1998, end: 201809
  5. LIPITOR [Concomitant]
     Active Substance: ATORVASTATIN CALCIUM
     Dosage: 40 MG, QD

REACTIONS (1)
  - Arterial therapeutic procedure [Unknown]

NARRATIVE: CASE EVENT DATE: 20180918
